FAERS Safety Report 24556939 (Version 2)
Quarter: 2024Q4

REPORT INFORMATION
  Report Type: Report from Study
  Country: US (occurrence: US)
  Receive Date: 20241028
  Receipt Date: 20241106
  Transmission Date: 20250114
  Serious: No
  Sender: ASTELLAS
  Company Number: US-ASTELLAS-2024-AER-014746

PATIENT
  Age: 45 Year
  Sex: Female

DRUGS (2)
  1. FEZOLINETANT [Suspect]
     Active Substance: FEZOLINETANT
     Indication: Menopausal symptoms
     Route: 050
     Dates: start: 202406
  2. FEZOLINETANT [Suspect]
     Active Substance: FEZOLINETANT
     Indication: Flushing

REACTIONS (3)
  - Migraine [Unknown]
  - Concussion [Unknown]
  - Off label use [Unknown]

NARRATIVE: CASE EVENT DATE: 20240601
